FAERS Safety Report 8713157 (Version 2)
Quarter: 2012Q4

REPORT INFORMATION
  Report Type: 
  Country: US (occurrence: US)
  Receive Date: 20120808
  Receipt Date: 20120912
  Transmission Date: 20130627
  Serious: Yes (Other)
  Sender: FDA-Public Use
  Company Number: US-PFIZER INC-2012189133

PATIENT
  Age: 12 Year
  Sex: Female

DRUGS (2)
  1. GENOTROPIN [Suspect]
     Indication: GROWTH RETARDATION
     Dosage: 1.4 mg, 6 injections/week
     Route: 058
     Dates: start: 201004
  2. SUPPRELIN LA [Concomitant]
     Indication: GROWTH RETARDATION
     Dosage: 50 mg
     Route: 058
     Dates: start: 201007, end: 201207

REACTIONS (1)
  - Osteochondrosis [Recovering/Resolving]
